FAERS Safety Report 24709324 (Version 1)
Quarter: 2024Q4

REPORT INFORMATION
  Report Type: Spontaneous
  Country: CN (occurrence: CN)
  Receive Date: 20241208
  Receipt Date: 20241208
  Transmission Date: 20250114
  Serious: Yes (Other)
  Sender: JOHNSON AND JOHNSON
  Company Number: CN-JNJFOC-20241171245

PATIENT

DRUGS (10)
  1. RISPERDAL [Suspect]
     Active Substance: RISPERIDONE
     Indication: Schizophrenia
  2. RISPERDAL [Suspect]
     Active Substance: RISPERIDONE
     Indication: Bipolar disorder
  3. RISPERDAL [Suspect]
     Active Substance: RISPERIDONE
     Indication: Depression
  4. RISPERDAL [Suspect]
     Active Substance: RISPERIDONE
     Indication: Delusional disorder, unspecified type
  5. RISPERDAL [Suspect]
     Active Substance: RISPERIDONE
     Indication: Personality disorder
  6. RISPERDAL [Suspect]
     Active Substance: RISPERIDONE
     Indication: Substance-induced psychotic disorder
  7. RISPERDAL [Suspect]
     Active Substance: RISPERIDONE
     Indication: Bradyphrenia
  8. RISPERDAL [Suspect]
     Active Substance: RISPERIDONE
     Indication: Senile dementia
  9. RISPERDAL [Suspect]
     Active Substance: RISPERIDONE
     Indication: Mental disorder
  10. RISPERDAL [Suspect]
     Active Substance: RISPERIDONE
     Indication: Somatic symptom disorder

REACTIONS (2)
  - Drug-induced liver injury [Unknown]
  - Off label use [Unknown]
